FAERS Safety Report 18443054 (Version 3)
Quarter: 2020Q4

REPORT INFORMATION
  Report Type: Report from Study
  Country: None (occurrence: CO)
  Receive Date: 20201029
  Receipt Date: 20201225
  Transmission Date: 20210114
  Serious: Yes (Death, Hospitalization)
  Sender: FDA-Public Use
  Company Number: CO-ABBVIE-20K-036-3627467-00

PATIENT
  Age: 57 Year
  Sex: Male
  Weight: 72 kg

DRUGS (3)
  1. ZEMPLAR [Suspect]
     Active Substance: PARICALCITOL
     Indication: CHRONIC KIDNEY DISEASE
  2. ZEMPLAR [Suspect]
     Active Substance: PARICALCITOL
     Indication: HYPERPARATHYROIDISM SECONDARY
     Route: 042
     Dates: start: 20180223, end: 20201022
  3. LOSARTAN. [Concomitant]
     Active Substance: LOSARTAN
     Indication: HYPERTENSION
     Route: 048

REACTIONS (6)
  - Pneumonia [Recovering/Resolving]
  - Inflammation [Unknown]
  - Pleural effusion [Unknown]
  - Respiratory arrest [Fatal]
  - Headache [Recovered/Resolved]
  - Suspected COVID-19 [Recovering/Resolving]

NARRATIVE: CASE EVENT DATE: 202010
